FAERS Safety Report 8498074-4 (Version None)
Quarter: 2012Q3

REPORT INFORMATION
  Report Type: 
  Country: None (occurrence: None)
  Receive Date: 20120709
  Receipt Date: 20120618
  Transmission Date: 20120928
  Serious: No
  Sender: FDA-Public Use
  Company Number: US-AMGEN-USASP2012038084

PATIENT
  Age: 36 Year
  Sex: Male

DRUGS (2)
  1. ENBREL [Suspect]
     Indication: RHEUMATOID ARTHRITIS
     Dosage: 50 MG, QWK
     Dates: start: 20120310, end: 20120501
  2. TREXALL [Concomitant]
     Dosage: UNK
     Dates: start: 20110901

REACTIONS (2)
  - THERAPEUTIC RESPONSE DECREASED [None]
  - HEPATIC ENZYME INCREASED [None]
